FAERS Safety Report 6179460-4 (Version None)
Quarter: 2009Q2

REPORT INFORMATION
  Report Type: 
  Country: None (occurrence: None)
  Receive Date: 20090501
  Receipt Date: 20090501
  Transmission Date: 20091009
  Serious: Yes (Disabling)
  Sender: FDA-Public Use
  Company Number: None

PATIENT
  Age: 54 Year
  Sex: Female
  Weight: 70.3075 kg

DRUGS (1)
  1. PROPOFOL [Suspect]

REACTIONS (5)
  - ASTHENIA [None]
  - FATIGUE [None]
  - LARYNGITIS [None]
  - PAIN [None]
  - RESPIRATORY TRACT INFECTION [None]
